FAERS Safety Report 8594239-1 (Version None)
Quarter: 2012Q3

REPORT INFORMATION
  Report Type: 
  Country: None (occurrence: None)
  Receive Date: 20120814
  Receipt Date: 20120809
  Transmission Date: 20120928
  Serious: No
  Sender: FDA-Public Use
  Company Number: US-009507513-1208USA004512

PATIENT

DRUGS (4)
  1. PROCRIT [Concomitant]
     Dosage: UNK
     Dates: start: 20120101
  2. PEG-INTRON [Suspect]
     Dosage: 120 MICROGRAM, QW
     Route: 058
     Dates: start: 20120501
  3. RIBASPHERE [Suspect]
  4. VICTRELIS [Suspect]
     Indication: HEPATITIS C
     Dosage: 800 MG, TID
     Route: 048
     Dates: start: 20120301

REACTIONS (2)
  - INAPPROPRIATE SCHEDULE OF DRUG ADMINISTRATION [None]
  - CELLULITIS [None]
